FAERS Safety Report 25250607 (Version 1)
Quarter: 2025Q2

REPORT INFORMATION
  Report Type: Spontaneous
  Country: US (occurrence: US)
  Receive Date: 20250429
  Receipt Date: 20250429
  Transmission Date: 20250716
  Serious: Yes (Hospitalization)
  Sender: PACIRA
  Company Number: US-ORG100016242-2025000101

PATIENT
  Age: 75 Year
  Sex: Female

DRUGS (5)
  1. EXPAREL [Suspect]
     Active Substance: BUPIVACAINE
     Indication: Hip arthroplasty
     Route: 065
     Dates: start: 20240508, end: 20240508
  2. UNSPECIFIED INGREDIENT [Concomitant]
     Active Substance: UNSPECIFIED INGREDIENT
     Indication: General anaesthesia
     Route: 065
     Dates: start: 20240508, end: 20240508
  3. ACETAMINOPHEN\HYDROCODONE [Concomitant]
     Active Substance: ACETAMINOPHEN\HYDROCODONE
     Indication: Product used for unknown indication
     Route: 065
  4. METHOCARBAMOL [Concomitant]
     Active Substance: METHOCARBAMOL
     Indication: Product used for unknown indication
     Route: 065
  5. GABAPENTIN [Concomitant]
     Active Substance: GABAPENTIN
     Indication: Neuropathy peripheral
     Route: 065

REACTIONS (3)
  - Drug ineffective [Unknown]
  - Patella fracture [Unknown]
  - Fall [Unknown]
